FAERS Safety Report 5334744-4 (Version None)
Quarter: 2007Q1

REPORT INFORMATION
  Report Type: 
  Country: None (occurrence: None)
  Receive Date: 20070306
  Receipt Date: 20060810
  Transmission Date: 20070707
  Serious: Yes (Other)
  Sender: FDA-Public Use
  Company Number: A03200605116

PATIENT
  Age: 69 Year
  Sex: Male
  Weight: 79.36 kg

DRUGS (5)
  1. PLAVIX [Suspect]
     Indication: CEREBROVASCULAR ACCIDENT
     Dosage: 75 MG QD - ORAL
     Route: 048
     Dates: start: 20010801
  2. HYDROCHLOROTHIAZIDE [Concomitant]
  3. BISACODYL [Concomitant]
  4. BUSPIRONE [Concomitant]
  5. CHANNEL BLOCKER (NOS) [Concomitant]

REACTIONS (2)
  - BLOOD DISORDER [None]
  - HAEMORRHAGE [None]
